FAERS Safety Report 13928076 (Version 1)
Quarter: 2017Q3

REPORT INFORMATION
  Report Type: Spontaneous
  Country: US (occurrence: US)
  Receive Date: 20170901
  Receipt Date: 20170901
  Transmission Date: 20171127
  Serious: Yes (Hospitalization)
  Sender: FDA-Public Use
  Company Number: PHHY2017US127010

PATIENT
  Age: 61 Year
  Sex: Male

DRUGS (1)
  1. NYSTATIN. [Suspect]
     Active Substance: NYSTATIN
     Indication: RASH ERYTHEMATOUS
     Route: 061

REACTIONS (1)
  - Rash erythematous [Unknown]
